FAERS Safety Report 20319730 (Version 3)
Quarter: 2022Q1

REPORT INFORMATION
  Report Type: Spontaneous
  Country: US (occurrence: US)
  Receive Date: 20220111
  Receipt Date: 20220119
  Transmission Date: 20220423
  Serious: Yes (Other)
  Sender: FDA-Public Use
  Company Number: US-JNJFOC-20220107226

PATIENT
  Sex: Female

DRUGS (1)
  1. NEUTROGENA BEACH DEFENSE WATER PLUS SUN BARRIER SUNSCREEN BROAD SPECTR [Suspect]
     Active Substance: AVOBENZONE\HOMOSALATE\OCTISALATE\OCTOCRYLENE\OXYBENZONE
     Indication: Product used for unknown indication
     Route: 061

REACTIONS (1)
  - Skin cancer [Unknown]
